FAERS Safety Report 23062891 (Version 1)
Quarter: 2023Q4

REPORT INFORMATION
  Report Type: Report from Study
  Country: GB (occurrence: GB)
  Receive Date: 20231013
  Receipt Date: 20231013
  Transmission Date: 20240110
  Serious: Yes (Other)
  Sender: FDA-Public Use
  Company Number: GB-002147023-NVSC2022GB117627

PATIENT
  Sex: Female

DRUGS (2)
  1. OMNITROPE [Suspect]
     Active Substance: SOMATROPIN
     Indication: Growth hormone deficiency
     Dosage: 0.6 MG, QD (AS DIRECTED)
     Route: 058
     Dates: start: 20220526
  2. OMNITROPE [Suspect]
     Active Substance: SOMATROPIN
     Indication: Hypopituitarism
     Dosage: 0.70 MG, QD
     Route: 058

REACTIONS (10)
  - Autism spectrum disorder [Unknown]
  - Abnormal behaviour [Unknown]
  - Fatigue [Recovering/Resolving]
  - Fall [Recovering/Resolving]
  - Musculoskeletal pain [Recovering/Resolving]
  - Hypersomnia [Recovering/Resolving]
  - Therapeutic product effect decreased [Unknown]
  - Injection site bruising [Recovering/Resolving]
  - Device dispensing error [Unknown]
  - Product dose omission issue [Not Recovered/Not Resolved]
